FAERS Safety Report 21141611 (Version 1)
Quarter: 2022Q3

REPORT INFORMATION
  Report Type: Spontaneous
  Country: US (occurrence: US)
  Receive Date: 20220728
  Receipt Date: 20220728
  Transmission Date: 20221027
  Serious: No
  Sender: FDA-Public Use
  Company Number: US-BAYER-2022A103328

PATIENT
  Age: 22 Year
  Sex: Female

DRUGS (2)
  1. KYLEENA [Suspect]
     Active Substance: LEVONORGESTREL
     Indication: Contraception
     Dosage: 17.5?G/DAY
     Route: 015
     Dates: start: 20211209
  2. KYLEENA [Suspect]
     Active Substance: LEVONORGESTREL
     Indication: Polycystic ovaries

REACTIONS (2)
  - Migraine [None]
  - Breast pain [None]

NARRATIVE: CASE EVENT DATE: 20220615
